FAERS Safety Report 14673482 (Version 1)
Quarter: 2018Q1

REPORT INFORMATION
  Report Type: Spontaneous
  Country: BR (occurrence: BR)
  Receive Date: 20180323
  Receipt Date: 20180323
  Transmission Date: 20180509
  Serious: Yes (Other)
  Sender: FDA-Public Use
  Company Number: BR-AMGEN-BRASP2018016770

PATIENT
  Age: 34 Year
  Sex: Male

DRUGS (2)
  1. ENBREL [Suspect]
     Active Substance: ETANERCEPT
     Dosage: 50 MG, WEEKLY
     Route: 065
     Dates: start: 20180201
  2. ENBREL [Suspect]
     Active Substance: ETANERCEPT
     Indication: PSORIATIC ARTHROPATHY
     Dosage: 100 MG, WEEKLY (TWO SYRINGES OF 50MG)
     Route: 065
     Dates: start: 201708

REACTIONS (10)
  - Pruritus [Recovered/Resolved]
  - Diarrhoea [Recovered/Resolved]
  - Arthralgia [Recovered/Resolved]
  - Product use issue [Unknown]
  - Vomiting [Recovered/Resolved]
  - Spinal pain [Recovered/Resolved]
  - Erythema [Recovered/Resolved]
  - Bone pain [Recovered/Resolved]
  - Enteritis infectious [Recovered/Resolved]
  - Zika virus infection [Recovered/Resolved]

NARRATIVE: CASE EVENT DATE: 201708
